FAERS Safety Report 4820574-6 (Version None)
Quarter: 2005Q4

REPORT INFORMATION
  Report Type: 
  Country: None (occurrence: None)
  Receive Date: 20051104
  Receipt Date: 20051025
  Transmission Date: 20060501
  Serious: Yes (Other)
  Sender: FDA-Public Use
  Company Number: US-JNJFOC-20051005253

PATIENT
  Sex: Female

DRUGS (10)
  1. REMICADE [Suspect]
     Indication: RHEUMATOID ARTHRITIS
     Route: 042
  2. FLEXERIL [Concomitant]
  3. VICODIN [Concomitant]
  4. VICODIN [Concomitant]
  5. IBUPROFEN [Concomitant]
  6. CODEINE [Concomitant]
  7. PREDNISONE [Concomitant]
  8. SOMA [Concomitant]
  9. LEVOXYL [Concomitant]
     Route: 048
  10. VALIUM [Concomitant]
     Route: 048

REACTIONS (2)
  - DYSPNOEA [None]
  - SYSTEMIC LUPUS ERYTHEMATOSUS [None]
